FAERS Safety Report 16024749 (Version 3)
Quarter: 2019Q2

REPORT INFORMATION
  Report Type: Report from Study
  Country: MX (occurrence: MX)
  Receive Date: 20190301
  Receipt Date: 20190402
  Transmission Date: 20190711
  Serious: Yes (Hospitalization, Other)
  Sender: FDA-Public Use
  Company Number: MX-SHIRE-MX201906508

PATIENT

DRUGS (4)
  1. ELAPRASE [Suspect]
     Active Substance: IDURSULFASE
     Dosage: UNK 12 MG/06 ML
     Route: 042
     Dates: start: 20190222
  2. ELAPRASE [Suspect]
     Active Substance: IDURSULFASE
     Indication: PRODUCT USED FOR UNKNOWN INDICATION
     Dosage: 2 VIALS,EVERY 8 DAYS
     Route: 042
     Dates: start: 20190104
  3. AMBROXOL [Concomitant]
     Active Substance: AMBROXOL
     Indication: PRODUCT USED FOR UNKNOWN INDICATION
  4. METAMIZOLE [Concomitant]
     Active Substance: METAMIZOLE
     Indication: PRODUCT USED FOR UNKNOWN INDICATION

REACTIONS (3)
  - Pallor [Recovered/Resolved]
  - Thrombocytopenia [Unknown]
  - Weight decreased [Recovered/Resolved]

NARRATIVE: CASE EVENT DATE: 20190216
